FAERS Safety Report 6424789-5 (Version None)
Quarter: 2009Q4

REPORT INFORMATION
  Report Type: 
  Country: None (occurrence: None)
  Receive Date: 20091103
  Receipt Date: 20091023
  Transmission Date: 20100525
  Serious: Yes (Hospitalization)
  Sender: FDA-Public Use
  Company Number: FR-BAXTER-2009BH016486

PATIENT
  Age: 84 Year
  Sex: Female

DRUGS (10)
  1. ENDOXAN BAXTER [Suspect]
     Indication: CHEMOTHERAPY
     Route: 042
     Dates: start: 20090527, end: 20090527
  2. REVLIMID [Suspect]
     Indication: CHEMOTHERAPY
     Route: 065
  3. DEXAMETHASONE [Suspect]
     Indication: CHEMOTHERAPY
     Route: 065
  4. ZOMETA [Suspect]
     Indication: CHEMOTHERAPY
     Route: 065
  5. MELPHALAN [Suspect]
     Indication: CHEMOTHERAPY
     Route: 065
  6. ATENOLOL [Concomitant]
     Indication: DRUG USE FOR UNKNOWN INDICATION
     Route: 065
  7. MICARDIS [Concomitant]
     Indication: DRUG USE FOR UNKNOWN INDICATION
     Route: 065
  8. EFFERALGAN [Concomitant]
     Indication: DRUG USE FOR UNKNOWN INDICATION
     Route: 065
  9. PRIMPERAN [Concomitant]
     Indication: DRUG USE FOR UNKNOWN INDICATION
     Route: 042
  10. ZOPHREN [Concomitant]
     Indication: DRUG USE FOR UNKNOWN INDICATION
     Route: 042

REACTIONS (5)
  - CHILLS [None]
  - CYSTITIS HAEMORRHAGIC [None]
  - GENERAL PHYSICAL HEALTH DETERIORATION [None]
  - HAEMATURIA [None]
  - TACHYPNOEA [None]
